FAERS Safety Report 7271218-8 (Version None)
Quarter: 2011Q1

REPORT INFORMATION
  Report Type: 
  Country: None (occurrence: None)
  Receive Date: 20110202
  Receipt Date: 20110120
  Transmission Date: 20110831
  Serious: Yes (Hospitalization)
  Sender: FDA-Public Use
  Company Number: US-GENENTECH-313144

PATIENT
  Age: 63 Year
  Sex: Male
  Weight: 85 kg

DRUGS (9)
  1. PREDNISONE [Suspect]
     Indication: NON-HODGKIN'S LYMPHOMA
     Dosage: 40 MG/M2, UNK
     Route: 048
     Dates: start: 20101116, end: 20101120
  2. SENNOSIDE A+B [Concomitant]
     Indication: CONSTIPATION
  3. INOTUZUMAB OZOGAMICIN [Suspect]
     Indication: NON-HODGKIN'S LYMPHOMA
     Dosage: 1.3 MG/M2, UNK
     Route: 042
     Dates: start: 20101117, end: 20101127
  4. AMLODIPINE BESYLATE [Concomitant]
     Indication: HYPERTENSION
  5. RITUXAN [Suspect]
     Indication: NON-HODGKIN'S LYMPHOMA
     Dosage: 375 MG/M2, UNK
     Route: 042
     Dates: start: 20101116
  6. CYCLOPHOSPHAMIDE [Suspect]
     Indication: NON-HODGKIN'S LYMPHOMA
     Dosage: 750 MG/M2, UNK
     Route: 042
     Dates: start: 20101116
  7. VINCRISTINE [Suspect]
     Indication: NON-HODGKIN'S LYMPHOMA
     Dosage: 1.4 MG/M2, UNK
     Route: 042
     Dates: start: 20101116
  8. METOCLOPRAMIDE [Concomitant]
     Indication: NAUSEA
  9. ALLOPURINOL [Concomitant]
     Indication: HYPERURICAEMIA

REACTIONS (1)
  - HEPATITIS ACUTE [None]
